FAERS Safety Report 4407359-X (Version None)
Quarter: 2004Q3

REPORT INFORMATION
  Report Type: 
  Country: None (occurrence: None)
  Receive Date: 20040723
  Receipt Date: 20040723
  Transmission Date: 20050211
  Serious: Yes (Hospitalization)
  Sender: FDA-Public Use
  Company Number: None

PATIENT
  Age: 55 Year
  Sex: Female

DRUGS (4)
  1. ZOCOR [Suspect]
     Indication: CARDIOMYOPATHY
     Dosage: 80MG/DAY
     Dates: start: 20021101, end: 20030701
  2. ZOCOR [Suspect]
     Indication: CORONARY ARTERY DISEASE
     Dosage: 80MG/DAY
     Dates: start: 20021101, end: 20030701
  3. GEMFIBROZIL [Suspect]
     Indication: LIPIDS INCREASED
     Dosage: 600 MG BID
     Dates: start: 20030601, end: 20030701
  4. GEMFIBROZIL [Suspect]
     Indication: PULMONARY HYPERTENSION
     Dosage: 600 MG BID
     Dates: start: 20030601, end: 20030701

REACTIONS (3)
  - BLOOD UREA INCREASED [None]
  - RHABDOMYOLYSIS [None]
  - TRISMUS [None]
